FAERS Safety Report 8889487 (Version 1)
Quarter: 2012Q4

REPORT INFORMATION
  Report Type: Spontaneous
  Country: US (occurrence: None)
  Receive Date: 20121031
  Receipt Date: 20121031
  Transmission Date: 20130627
  Serious: Yes (Hospitalization)
  Sender: FDA-Public Use
  Company Number: ES-2012-3634

PATIENT
  Age: 47 Year
  Sex: Female
  Weight: 51 kg

DRUGS (4)
  1. NAVELBINE [Suspect]
     Indication: BREAST CANCER
     Route: 042
     Dates: start: 20120905
  2. PERTUZUMAB [Suspect]
     Indication: BREAST CANCER
     Dosage: per chemo regimen,
     Route: 042
     Dates: start: 20120905
  3. TRASTUZUMAB [Suspect]
     Indication: BREAST CANCER
     Dosage: per chemo regimen,
     Route: 042
     Dates: start: 20120925
  4. ZOLPIDEM TARTRATE (ZOLPIDEM TARTRATE) [Concomitant]

REACTIONS (2)
  - Abdominal pain [None]
  - Diarrhoea [None]
